FAERS Safety Report 6407502-7 (Version None)
Quarter: 2009Q4

REPORT INFORMATION
  Report Type: 
  Country: None (occurrence: None)
  Receive Date: 20091020
  Receipt Date: 20091009
  Transmission Date: 20100525
  Serious: Yes (Other)
  Sender: FDA-Public Use
  Company Number: US-JNJFOC-20091004050

PATIENT
  Sex: Female
  Weight: 49.9 kg

DRUGS (8)
  1. REMICADE [Suspect]
     Dosage: EVERY 6-8 WEEKS
     Route: 042
  2. REMICADE [Suspect]
     Indication: RHEUMATOID ARTHRITIS
     Route: 042
  3. PREDNISONE TAB [Concomitant]
  4. WARFARIN SODIUM [Concomitant]
  5. DIGOXIN [Concomitant]
  6. CALCIUM [Concomitant]
  7. HYDROCODONE [Concomitant]
     Indication: PAIN
  8. VITAMIN D [Concomitant]

REACTIONS (2)
  - INFECTION [None]
  - SKIN LACERATION [None]
